FAERS Safety Report 15389939 (Version 1)
Quarter: 2018Q3

REPORT INFORMATION
  Report Type: Report from Study
  Country: US (occurrence: US)
  Receive Date: 20180917
  Receipt Date: 20180917
  Transmission Date: 20181010
  Serious: Yes (Death, Other)
  Sender: FDA-Public Use
  Company Number: US-AUROBINDO-AUR-APL-2018-045725

PATIENT
  Age: 41 Year
  Sex: Female

DRUGS (1)
  1. ACETAMINOPHEN. [Suspect]
     Active Substance: ACETAMINOPHEN
     Indication: PRODUCT USED FOR UNKNOWN INDICATION
     Dosage: UNK
     Route: 065

REACTIONS (11)
  - Coma [Unknown]
  - Haemolysis [Unknown]
  - Anion gap [Unknown]
  - Rhabdomyolysis [Unknown]
  - Respiratory depression [Unknown]
  - Hepatotoxicity [Unknown]
  - Agitation [Unknown]
  - Toxicity to various agents [Fatal]
  - Acute kidney injury [Unknown]
  - Pancreatitis [Unknown]
  - Tachycardia [Unknown]
